FAERS Safety Report 5197561-4 (Version None)
Quarter: 2007Q1

REPORT INFORMATION
  Report Type: 
  Country: None (occurrence: None)
  Receive Date: 20070103
  Receipt Date: 20061222
  Transmission Date: 20070707
  Serious: Yes (Life-Threatening, Hospitalization, Other)
  Sender: FDA-Public Use
  Company Number: JP-PFIZER INC-2006090058

PATIENT
  Sex: Female
  Weight: 55 kg

DRUGS (16)
  1. LIPITOR [Suspect]
     Indication: HYPERCHOLESTEROLAEMIA
     Route: 048
  2. HALCION [Suspect]
     Indication: INSOMNIA
     Dosage: TEXT:1 TABLET-FREQ:DAILY
     Route: 048
  3. HALCION [Suspect]
     Indication: ANXIETY
  4. ETIZOLAM [Suspect]
     Indication: INSOMNIA
     Route: 048
     Dates: start: 19960904
  5. ETIZOLAM [Suspect]
     Indication: ANXIETY
  6. TRIAZOLAM [Suspect]
     Indication: INSOMNIA
     Route: 048
  7. TRIAZOLAM [Suspect]
     Indication: ANXIETY
  8. FLUNITRAZEPAM [Suspect]
     Indication: INSOMNIA
     Dosage: TEXT:1 TABLET-FREQ:DAILY
     Route: 048
  9. FLUNITRAZEPAM [Suspect]
     Indication: ANXIETY
  10. BROTIZOLAM [Suspect]
     Indication: INSOMNIA
     Route: 048
  11. BROTIZOLAM [Suspect]
     Indication: ANXIETY
  12. CONTOMIN [Suspect]
     Indication: INSOMNIA
     Route: 048
     Dates: start: 20050819
  13. CONTOMIN [Suspect]
     Indication: ANXIETY
  14. NORVASC [Concomitant]
     Route: 048
  15. ECABET MONOSODIUM [Concomitant]
     Route: 048
     Dates: start: 20060110
  16. LANSOPRAZOLE [Concomitant]
     Route: 048
     Dates: start: 20060110

REACTIONS (10)
  - ABASIA [None]
  - BLOOD CREATINE PHOSPHOKINASE MB INCREASED [None]
  - DEHYDRATION [None]
  - DIABETES MELLITUS [None]
  - INFECTION [None]
  - PERITONITIS [None]
  - PYREXIA [None]
  - RHABDOMYOLYSIS [None]
  - TACHYCARDIA [None]
  - UTERINE LEIOMYOMA [None]
